FAERS Safety Report 23369177 (Version 1)
Quarter: 2024Q1

REPORT INFORMATION
  Report Type: Spontaneous
  Country: US (occurrence: US)
  Receive Date: 20240105
  Receipt Date: 20240105
  Transmission Date: 20240410
  Serious: Yes (Other)
  Sender: FDA-Public Use
  Company Number: US-HIKMA PHARMACEUTICALS-US-H14001-23-68627

PATIENT
  Age: 73 Year
  Sex: Female

DRUGS (7)
  1. AMIKACIN [Suspect]
     Active Substance: AMIKACIN
     Indication: Surgery
     Dosage: UNK
     Route: 042
     Dates: start: 202007
  2. IMIPENEM [Suspect]
     Active Substance: IMIPENEM
     Indication: Surgery
     Dosage: UNK
     Route: 042
     Dates: start: 202007
  3. AZITHROMYCIN [Concomitant]
     Active Substance: AZITHROMYCIN
     Dosage: 50 MILLIGRAM, QD
     Route: 065
  4. AZITHROMYCIN [Concomitant]
     Active Substance: AZITHROMYCIN
     Indication: Mycobacterium avium complex infection
     Dosage: UNK
     Route: 065
     Dates: start: 202006
  5. CLOFAZIMINE [Concomitant]
     Active Substance: CLOFAZIMINE
     Indication: Mycobacterium avium complex infection
     Dosage: 100 MILLIGRAM, QD
     Route: 065
  6. ETHAMBUTOL [Concomitant]
     Active Substance: ETHAMBUTOL HYDROCHLORIDE
     Dosage: 800 MILLIGRAM, QD
     Route: 065
  7. ETHAMBUTOL [Concomitant]
     Active Substance: ETHAMBUTOL HYDROCHLORIDE
     Indication: Mycobacterium avium complex infection
     Dosage: UNK
     Route: 065

REACTIONS (2)
  - Disease progression [Unknown]
  - Mycobacterium abscessus infection [Unknown]

NARRATIVE: CASE EVENT DATE: 20230802
